FAERS Safety Report 7902529-8 (Version None)
Quarter: 2011Q4

REPORT INFORMATION
  Report Type: 
  Country: None (occurrence: None)
  Receive Date: 20111108
  Receipt Date: 20111026
  Transmission Date: 20120403
  Serious: Yes (Other)
  Sender: FDA-Public Use
  Company Number: TW-ELI_LILLY_AND_COMPANY-TW201110007640

PATIENT
  Age: 71 Year
  Sex: Female

DRUGS (1)
  1. FORTEO [Suspect]
     Indication: OSTEOPOROSIS
     Dosage: UNK
     Dates: start: 20110615, end: 20111022

REACTIONS (6)
  - DIZZINESS [None]
  - VERTEBROPLASTY [None]
  - DISCOMFORT [None]
  - INTENTIONAL DRUG MISUSE [None]
  - PALPITATIONS [None]
  - HEADACHE [None]
